FAERS Safety Report 11705434 (Version 1)
Quarter: 2015Q4

REPORT INFORMATION
  Report Type: Spontaneous
  Country: KR (occurrence: KR)
  Receive Date: 20151106
  Receipt Date: 20151106
  Transmission Date: 20160304
  Serious: Yes (Hospitalization)
  Sender: FDA-Public Use
  Company Number: KR-AMGEN-KORCT2015117707

PATIENT
  Age: 72 Year
  Sex: Male
  Weight: 49.1 kg

DRUGS (18)
  1. DOXORUBICIN [Concomitant]
     Active Substance: DOXORUBICIN
     Dosage: 62.63 MG, UNK
     Route: 042
     Dates: start: 20150904, end: 20150904
  2. DOXORUBICIN [Concomitant]
     Active Substance: DOXORUBICIN
     Dosage: 51 MG, UNK
     Route: 042
     Dates: start: 20151020, end: 20151020
  3. G-LASTA [Suspect]
     Active Substance: PEGFILGRASTIM
     Indication: FEBRILE NEUTROPENIA
     Dosage: 6 MG, 1X/3WEEKS
     Route: 058
     Dates: start: 20150805, end: 20150805
  4. PREDNISOLONE. [Concomitant]
     Active Substance: PREDNISOLONE
     Dosage: 60 MG, UNK
     Route: 048
     Dates: start: 20151020, end: 20151020
  5. G-LASTA [Suspect]
     Active Substance: PEGFILGRASTIM
     Dosage: 6 MG, 1X/3WEEKS
     Route: 058
     Dates: start: 20151021, end: 20151021
  6. CYCLOPHOSPHAMIDE. [Concomitant]
     Active Substance: CYCLOPHOSPHAMIDE
     Dosage: 804.38 MG, UNK
     Route: 042
     Dates: start: 20150804, end: 20150804
  7. CYCLOPHOSPHAMIDE. [Concomitant]
     Active Substance: CYCLOPHOSPHAMIDE
     Dosage: 939.38 MG, UNK
     Route: 042
     Dates: start: 20150904, end: 20150904
  8. DOXORUBICIN [Concomitant]
     Active Substance: DOXORUBICIN
     Dosage: 50 MG, UNK
     Route: 042
     Dates: start: 20150804, end: 20150804
  9. VINCRISTINE [Concomitant]
     Active Substance: VINCRISTINE
     Dosage: 2 MG, UNK
     Route: 042
     Dates: start: 20150904, end: 20150904
  10. G-LASTA [Suspect]
     Active Substance: PEGFILGRASTIM
     Dosage: 6 MG, 1X/3WEEKS
     Route: 058
     Dates: start: 20150905, end: 20150905
  11. RITUXIMAB [Concomitant]
     Active Substance: RITUXIMAB
     Dosage: 536.25 MG, UNK
     Route: 042
     Dates: start: 20150804, end: 20150804
  12. VINCRISTINE [Concomitant]
     Active Substance: VINCRISTINE
     Dosage: 1.9 MG, UNK
     Route: 042
     Dates: start: 20151020, end: 20151020
  13. PREDNISOLONE. [Concomitant]
     Active Substance: PREDNISOLONE
     Dosage: 110 MG, UNK
     Route: 048
     Dates: start: 20150804, end: 20150804
  14. RITUXIMAB [Concomitant]
     Active Substance: RITUXIMAB
     Dosage: 510 MG, UNK
     Route: 042
     Dates: start: 20151020, end: 20151020
  15. CYCLOPHOSPHAMIDE. [Concomitant]
     Active Substance: CYCLOPHOSPHAMIDE
     Dosage: 765 MG, UNK
     Route: 042
     Dates: start: 20151020, end: 20151020
  16. VINCRISTINE [Concomitant]
     Active Substance: VINCRISTINE
     Dosage: 2 MG, UNK
     Route: 042
     Dates: start: 20150804, end: 20150804
  17. PREDNISOLONE. [Concomitant]
     Active Substance: PREDNISOLONE
     Dosage: 60 MG, UNK
     Route: 048
     Dates: start: 20150904, end: 20150904
  18. RITUXIMAB [Concomitant]
     Active Substance: RITUXIMAB
     Dosage: 626.25 MG, UNK
     Route: 042
     Dates: start: 20150904, end: 20150904

REACTIONS (1)
  - Neutropenia [Recovered/Resolved]

NARRATIVE: CASE EVENT DATE: 20151027
